FAERS Safety Report 10157920 (Version 1)
Quarter: 2014Q2

REPORT INFORMATION
  Report Type: Spontaneous
  Country: US (occurrence: US)
  Receive Date: 20140507
  Receipt Date: 20140507
  Transmission Date: 20141212
  Serious: No
  Sender: FDA-Public Use
  Company Number: US-BAYER-2014-065578

PATIENT
  Sex: Male

DRUGS (5)
  1. XOFIGO [Suspect]
     Indication: PROSTATE CANCER METASTATIC
     Dosage: 98.6000 MICROURIE
     Dates: start: 20131231
  2. XOFIGO [Suspect]
     Indication: BONE CANCER
     Dosage: 98.6000 MICROURIE
     Dates: start: 20140128
  3. XOFIGO [Suspect]
     Indication: PROSTATE CANCER METASTATIC
     Dosage: 98.6000 MICROURIE
     Dates: start: 20140225
  4. XOFIGO [Suspect]
     Indication: PROSTATE CANCER METASTATIC
     Dosage: 98.6000 MICROURIE
     Dates: start: 20140325
  5. XOFIGO [Suspect]
     Indication: PROSTATE CANCER METASTATIC
     Dosage: 98.6000 MICROURIE
     Dates: start: 20140422

REACTIONS (1)
  - Gait disturbance [None]
